FAERS Safety Report 9453725 (Version 1)
Quarter: 2013Q1

REPORT INFORMATION
  Report Type: Not Available
  Country: US (occurrence: US)
  Receive Date: 20120321
  Receipt Date: 20120321
  Transmission Date: 20140127
  Serious: Yes (Other)
  Sender: FDA-Public Use
  Company Number: US-LUNDBECK-DKLU1076032

PATIENT
  Sex: Male
  Weight: 133.6 kg

DRUGS (13)
  1. SABRIL     (TABLET) [Suspect]
     Indication: COMPLEX PARTIAL SEIZURES
     Route: 048
     Dates: start: 20110813, end: 201109
  2. SABRIL     (TABLET) [Suspect]
     Indication: COMPLEX PARTIAL SEIZURES
     Route: 048
     Dates: start: 201109
  3. SABRIL     (TABLET) [Suspect]
     Route: 048
     Dates: start: 20110811
  4. LAMICTAL [Concomitant]
     Indication: CONVULSION
  5. TOPIRAMATE [Concomitant]
     Indication: CONVULSION
  6. TRILEPTAL [Concomitant]
     Indication: CONVULSION
  7. FLONASE [Concomitant]
     Indication: HYPERSENSITIVITY
  8. OMEPRAZOLE [Concomitant]
     Indication: GASTROOESOPHAGEAL REFLUX DISEASE
  9. COLACE [Concomitant]
     Indication: CONSTIPATION
  10. ZYRTEC [Concomitant]
     Indication: HYPERSENSITIVITY
  11. MVI [Concomitant]
     Indication: VITAMIN SUPPLEMENTATION
  12. VITAMIN D [Concomitant]
     Indication: MINERAL SUPPLEMENTATION
  13. TOPAMAX [Concomitant]
     Indication: PRODUCT USED FOR UNKNOWN INDICATION

REACTIONS (3)
  - Convulsion [Unknown]
  - Ophthalmological examination [Unknown]
  - Coordination abnormal [Recovering/Resolving]
